FAERS Safety Report 21075115 (Version 2)
Quarter: 2022Q3

REPORT INFORMATION
  Report Type: Spontaneous
  Country: US (occurrence: US)
  Receive Date: 20220713
  Receipt Date: 20220821
  Transmission Date: 20221027
  Serious: No
  Sender: FDA-Public Use
  Company Number: US-VIIV HEALTHCARE LIMITED-US2022AMR103687

PATIENT

DRUGS (4)
  1. RILPIVIRINE [Suspect]
     Active Substance: RILPIVIRINE
     Indication: Product used for unknown indication
     Dosage: UNK, 900MG RILPIVIRINE
     Route: 065
     Dates: start: 202203
  2. RILPIVIRINE [Suspect]
     Active Substance: RILPIVIRINE
     Dosage: UNK, 900MG RILPIVIRINE
     Route: 065
     Dates: start: 20220406, end: 20220707
  3. CABOTEGRAVIR [Suspect]
     Active Substance: CABOTEGRAVIR
     Indication: Product used for unknown indication
     Dosage: UNK, 900MG RILPIVIRINE
     Route: 065
     Dates: start: 202203
  4. CABOTEGRAVIR [Suspect]
     Active Substance: CABOTEGRAVIR
     Dosage: UNK, 900MG RILPIVIRINE
     Route: 065
     Dates: start: 20220406, end: 20220706

REACTIONS (4)
  - Dermal cyst [Recovering/Resolving]
  - Pain [Unknown]
  - Discharge [Unknown]
  - Wrong technique in product usage process [Unknown]

NARRATIVE: CASE EVENT DATE: 20220406
